FAERS Safety Report 25535144 (Version 1)
Quarter: 2025Q3

REPORT INFORMATION
  Report Type: Spontaneous
  Country: EU (occurrence: EU)
  Receive Date: 20250709
  Receipt Date: 20250709
  Transmission Date: 20251021
  Serious: Yes (Hospitalization)
  Sender: SANDOZ
  Company Number: EU-002147023-PHHO1999DE01797

PATIENT
  Age: 63 Year
  Sex: Male

DRUGS (41)
  1. ACETYLCYSTEINE [Suspect]
     Active Substance: ACETYLCYSTEINE
     Indication: Mucosal inflammation
     Dosage: TAB 1 UNK, QD 08-NOV-1998 00:00
     Route: 048
  2. ACETYLCYSTEINE [Suspect]
     Active Substance: ACETYLCYSTEINE
     Indication: Cough
     Route: 048
     Dates: end: 19981109
  3. ASPIRIN [Suspect]
     Active Substance: ASPIRIN
     Indication: Coronary artery disease
     Dosage: 50 MG, QD
     Route: 048
  4. AMOXICILLIN [Suspect]
     Active Substance: AMOXICILLIN
     Indication: Bronchitis
     Route: 048
  5. ACTRAPID [Suspect]
     Active Substance: INSULIN HUMAN
     Indication: Diabetes mellitus
     Route: 042
     Dates: end: 19981107
  6. ASPIRIN LYSINE [Suspect]
     Active Substance: ASPIRIN LYSINE
     Indication: Angina pectoris
     Route: 042
     Dates: end: 19981107
  7. MOLSIDOMINE [Suspect]
     Active Substance: MOLSIDOMINE
     Dosage: 8 MG, QD  06-NOV-1998 00:00
     Route: 048
  8. MOLSIDOMINE [Suspect]
     Active Substance: MOLSIDOMINE
     Indication: Coronary artery disease
     Dosage: UNK UNK, QD (I TAB) 08-NOV-1998 00:00
     Route: 048
  9. DIAZEPAM [Suspect]
     Active Substance: DIAZEPAM
     Indication: Restlessness
     Dosage: UNK UNK, QD  07-NOV-1998 00:00
     Route: 048
     Dates: end: 19981107
  10. FLUVASTATIN SODIUM [Suspect]
     Active Substance: FLUVASTATIN SODIUM
     Indication: Hypercholesterolaemia
     Dosage: 40 MG, QD23-OCT-1998 00:00
     Route: 048
     Dates: end: 19981106
  11. FUROSEMIDE [Suspect]
     Active Substance: FUROSEMIDE
     Indication: Coronary artery insufficiency
     Route: 065
     Dates: end: 19981107
  12. FUROSEMIDE [Suspect]
     Active Substance: FUROSEMIDE
     Indication: Oedema
     Dosage: UNSPECIFIED  07-NOV-1998 00:00
     Route: 048
  13. FUROSEMIDE [Suspect]
     Active Substance: FUROSEMIDE
     Route: 048
  14. FUROSEMIDE [Suspect]
     Active Substance: FUROSEMIDE
     Indication: Product used for unknown indication
     Route: 042
     Dates: end: 19981107
  15. HEPARIN [Suspect]
     Active Substance: HEPARIN SODIUM
     Route: 058
     Dates: end: 19981107
  16. HEPARIN [Suspect]
     Active Substance: HEPARIN SODIUM
     Indication: Thrombosis
     Route: 042
     Dates: end: 19981109
  17. ISOSORBIDE DINITRATE [Suspect]
     Active Substance: ISOSORBIDE DINITRATE
     Indication: Coronary artery disease
     Dosage: 20 MG, BID    08-NOV-1998 00:00
     Route: 048
  18. ISOSORBIDE DINITRATE [Suspect]
     Active Substance: ISOSORBIDE DINITRATE
     Dosage: 60 MG, QD 08-NOV-1998 00:00
     Route: 048
  19. LASIX [Suspect]
     Active Substance: FUROSEMIDE
     Indication: Coronary artery insufficiency
     Route: 042
     Dates: end: 19981107
  20. MORPHINE [Suspect]
     Active Substance: MORPHINE
     Indication: Pain
     Route: 042
     Dates: end: 19981107
  21. MCP [Suspect]
     Active Substance: METOCLOPRAMIDE HYDROCHLORIDE
     Indication: Illness
     Dosage: UNK (1 DOSAGE FORM AMP) 07-NOV-1998 00:00
     Route: 042
     Dates: end: 19981107
  22. MCP [Suspect]
     Active Substance: METOCLOPRAMIDE HYDROCHLORIDE
     Dosage: AMP 1
     Route: 048
     Dates: end: 19981106
  23. NITROGLYCERIN [Suspect]
     Active Substance: NITROGLYCERIN
     Dosage: UNK UNK, BID  09-NOV-1998 00:00
     Route: 048
  24. NITROGLYCERIN [Suspect]
     Active Substance: NITROGLYCERIN
     Route: 048
     Dates: end: 19981107
  25. NITROGLYCERIN [Suspect]
     Active Substance: NITROGLYCERIN
     Indication: Angina pectoris
     Route: 042
     Dates: end: 19981107
  26. ACETAMINOPHEN\CAFFEINE\PROPYPHENAZONE [Suspect]
     Active Substance: ACETAMINOPHEN\CAFFEINE\PROPYPHENAZONE
     Indication: Pain
     Route: 048
     Dates: end: 19981107
  27. FUROSEMIDE [Suspect]
     Active Substance: FUROSEMIDE
     Indication: Oedema
     Dosage: 2 DOSAGE FORM, QD  06-NOV-1998 00:00
     Route: 048
  28. ACETYLCYSTEINE [Suspect]
     Active Substance: ACETYLCYSTEINE
     Indication: Cough
     Route: 048
     Dates: end: 19981109
  29. ACETAMINOPHEN [Suspect]
     Active Substance: ACETAMINOPHEN
     Indication: Pyrexia
     Route: 054
     Dates: end: 19981109
  30. PANTOZOL [Suspect]
     Active Substance: PANTOPRAZOLE SODIUM
     Indication: Gastric ulcer
     Dosage: UNK, QD (1TAB) 07-NOV-1998 00:00
     Route: 048
  31. NITROGLYCERIN [Suspect]
     Active Substance: NITROGLYCERIN
     Indication: Angina pectoris
     Route: 042
     Dates: start: 19981107, end: 19981108
  32. NITROGLYCERIN [Suspect]
     Active Substance: NITROGLYCERIN
     Route: 042
     Dates: start: 19981107, end: 19981108
  33. NITROGLYCERIN [Suspect]
     Active Substance: NITROGLYCERIN
     Route: 048
     Dates: end: 19981109
  34. URAPIDIL [Suspect]
     Active Substance: URAPIDIL
     Indication: Angina pectoris
     Route: 042
     Dates: end: 19981107
  35. ALLOPURINOL [Suspect]
     Active Substance: ALLOPURINOL
     Indication: Hyperuricaemia
     Route: 048
     Dates: end: 19981106
  36. AQUAPHOR [Concomitant]
     Active Substance: PETROLATUM
     Indication: Product used for unknown indication
     Dosage: 40 MG, QD
     Route: 048
     Dates: start: 19981108
  37. AQUAPHOR [Concomitant]
     Active Substance: PETROLATUM
     Indication: Hypertension
     Route: 048
     Dates: end: 19981106
  38. INSULIN NOS [Concomitant]
     Active Substance: INSULIN NOS
     Indication: Diabetes mellitus
     Route: 058
  39. Ismn basics [Concomitant]
     Indication: Coronary artery disease
     Dosage: 60 MG, QD
     Route: 048
     Dates: end: 19981106
  40. MOLSIDOMINE [Concomitant]
     Active Substance: MOLSIDOMINE
     Indication: Coronary artery disease
     Route: 048
     Dates: end: 19981106
  41. CARVEDILOL [Concomitant]
     Active Substance: CARVEDILOL
     Indication: Hypertension
     Route: 048

REACTIONS (12)
  - Ocular hyperaemia [Unknown]
  - Leukocytosis [Unknown]
  - Blood urea increased [Unknown]
  - Blood creatinine increased [Unknown]
  - Oral mucosal eruption [Unknown]
  - Skin disorder [Unknown]
  - Erythema multiforme [Recovered/Resolved]
  - Stevens-Johnson syndrome [Recovered/Resolved]
  - Pyrexia [Unknown]
  - Pruritus [Unknown]
  - Pruritus [Unknown]
  - Rash [Unknown]

NARRATIVE: CASE EVENT DATE: 19981108
